FAERS Safety Report 10391441 (Version 1)
Quarter: 2014Q3

REPORT INFORMATION
  Report Type: Spontaneous
  Country: IT (occurrence: IT)
  Receive Date: 20140818
  Receipt Date: 20140818
  Transmission Date: 20150326
  Serious: Yes (Other)
  Sender: FDA-Public Use
  Company Number: IT-MYLAN-2014M1001422

PATIENT

DRUGS (5)
  1. VENLAFAXINE [Suspect]
     Active Substance: VENLAFAXINE HYDROCHLORIDE
     Indication: BIPOLAR II DISORDER
     Dosage: 150 MG, QD
     Route: 065
  2. LITHIUM [Suspect]
     Active Substance: LITHIUM CARBONATE
     Dosage: 600 MG, QD
     Route: 065
  3. ARIPIPRAZOLE [Suspect]
     Active Substance: ARIPIPRAZOLE
     Dosage: 7.5 MG, QD
     Route: 065
  4. BUPROPION [Suspect]
     Active Substance: BUPROPION
     Indication: BIPOLAR II DISORDER
     Dosage: 150 MG, QD
     Route: 065
  5. LEVOTHYROXINE SODIUM. [Concomitant]
     Active Substance: LEVOTHYROXINE SODIUM
     Indication: HYPOTHYROIDISM
     Dosage: 75 MICROG/DAY
     Route: 065

REACTIONS (3)
  - Hypomania [Recovered/Resolved]
  - Paradoxical drug reaction [Recovered/Resolved]
  - Drug ineffective [Recovered/Resolved]
